FAERS Safety Report 18210081 (Version 8)
Quarter: 2021Q2

REPORT INFORMATION
  Report Type: Report from Study
  Country: None (occurrence: NL)
  Receive Date: 20200829
  Receipt Date: 20210513
  Transmission Date: 20210717
  Serious: Yes (Disabling, Other)
  Sender: FDA-Public Use
  Company Number: NL-ABBVIE-17K-114-1954589-00

PATIENT
  Age: 68 Year
  Sex: Female
  Weight: 67 kg

DRUGS (18)
  1. DUODOPA [Suspect]
     Active Substance: CARBIDOPA\LEVODOPA
     Route: 050
  2. DUODOPA [Suspect]
     Active Substance: CARBIDOPA\LEVODOPA
     Dosage: MD 16.5 CD 3.0 ED 2.0
     Route: 050
  3. DUODOPA [Suspect]
     Active Substance: CARBIDOPA\LEVODOPA
     Dosage: MD: 16.5, CD: 2.8
     Route: 050
     Dates: start: 20170811
  4. MACROGOL [Concomitant]
     Active Substance: POLYETHYLENE GLYCOLS
     Indication: PRODUCT USED FOR UNKNOWN INDICATION
  5. DUODOPA [Suspect]
     Active Substance: CARBIDOPA\LEVODOPA
     Dosage: MD 15.5ML; CD 3.1ML/H; ED 2.0 ML
     Route: 050
  6. LAXANS [Concomitant]
     Indication: BOWEL MOVEMENT IRREGULARITY
  7. SINEMET [Concomitant]
     Active Substance: CARBIDOPA\LEVODOPA
     Indication: PRODUCT USED FOR UNKNOWN INDICATION
  8. DUODOPA [Suspect]
     Active Substance: CARBIDOPA\LEVODOPA
     Dosage: MD 14.5 ML, CD 1.6 ML, ED 1 ML (MORNING DOSE INCREASED WITH 1.0 ML)
     Route: 050
     Dates: start: 201704, end: 2017
  9. DUODOPA [Suspect]
     Active Substance: CARBIDOPA\LEVODOPA
     Dosage: CONTINUOUS DOSE INCREASED WITH 0.3 ML TO 2.5ML, TOOK 2 TO 3 TIMES A DAY AN EXTRA DOSE.
     Route: 050
     Dates: start: 2017, end: 2017
  10. DUODOPA [Suspect]
     Active Substance: CARBIDOPA\LEVODOPA
     Dosage: MD 13.5ML; CD 4.0ML/H; ED 2.0 ML
     Route: 050
  11. MADOPAR DISPERSIBL [Concomitant]
     Active Substance: BENSERAZIDE HYDROCHLORIDE\LEVODOPA
     Indication: PRODUCT USED FOR UNKNOWN INDICATION
     Dosage: TAKEN AT 6:00 A.M.
     Route: 048
     Dates: start: 2015
  12. DUODOPA [Suspect]
     Active Substance: CARBIDOPA\LEVODOPA
     Dosage: MD: 18.5 ML; CD: 3.1 ML; ED: 2.0 ML
     Route: 050
  13. DUODOPA [Suspect]
     Active Substance: CARBIDOPA\LEVODOPA
     Dosage: MD 12.5ML; CD 4.0ML/H; ED 2.0 ML
     Route: 050
  14. DUODOPA [Suspect]
     Active Substance: CARBIDOPA\LEVODOPA
     Dosage: MD 14.5ML; CD 3.5ML/H; ED 2.0 ML
     Route: 050
  15. DUODOPA [Suspect]
     Active Substance: CARBIDOPA\LEVODOPA
     Dosage: MD: 17.5, CD: 2.5, ED: 2.0
     Route: 050
     Dates: start: 2017, end: 2017
  16. DUODOPA [Suspect]
     Active Substance: CARBIDOPA\LEVODOPA
     Dosage: MD 16.5 CD 3.1 ED 2.0
     Route: 050
  17. MADOPAR MGA [Concomitant]
     Indication: PRODUCT USED FOR UNKNOWN INDICATION
     Route: 048
     Dates: start: 2015
  18. DUODOPA [Suspect]
     Active Substance: CARBIDOPA\LEVODOPA
     Indication: PARKINSON^S DISEASE
     Dosage: MD 13.5 ML, CD 1.6 ML, ED 1 ML
     Route: 050
     Dates: start: 20170410, end: 201704

REACTIONS (59)
  - Nerve compression [Not Recovered/Not Resolved]
  - Extra dose administered [Not Recovered/Not Resolved]
  - Abnormal behaviour [Not Recovered/Not Resolved]
  - Weight decreased [Recovered/Resolved]
  - Malaise [Recovered/Resolved]
  - Malaise [Not Recovered/Not Resolved]
  - Bradykinesia [Recovering/Resolving]
  - Disorientation [Not Recovered/Not Resolved]
  - Dyskinesia [Not Recovered/Not Resolved]
  - Stoma site erythema [Recovered/Resolved]
  - Cognitive disorder [Not Recovered/Not Resolved]
  - Brain neoplasm benign [Not Recovered/Not Resolved]
  - Nocturia [Recovering/Resolving]
  - Pain in extremity [Not Recovered/Not Resolved]
  - Device difficult to use [Not Recovered/Not Resolved]
  - Muscle spasms [Recovering/Resolving]
  - Abnormal dreams [Recovered/Resolved]
  - Depression [Not Recovered/Not Resolved]
  - On and off phenomenon [Not Recovered/Not Resolved]
  - Nausea [Recovered/Resolved]
  - Muscle rigidity [Not Recovered/Not Resolved]
  - Agitation [Not Recovered/Not Resolved]
  - Diarrhoea [Not Recovered/Not Resolved]
  - Dementia [Not Recovered/Not Resolved]
  - Obsessive-compulsive disorder [Not Recovered/Not Resolved]
  - Paraesthesia [Not Recovered/Not Resolved]
  - Abnormal dreams [Not Recovered/Not Resolved]
  - Hypotension [Not Recovered/Not Resolved]
  - Mobility decreased [Not Recovered/Not Resolved]
  - Peripheral coldness [Not Recovered/Not Resolved]
  - Fibroma [Recovered/Resolved]
  - Dizziness [Not Recovered/Not Resolved]
  - Stoma site pain [Recovered/Resolved]
  - Syncope [Not Recovered/Not Resolved]
  - Dependent personality disorder [Not Recovered/Not Resolved]
  - General physical condition abnormal [Not Recovered/Not Resolved]
  - Dyspnoea [Not Recovered/Not Resolved]
  - Insomnia [Recovered/Resolved]
  - Confusional state [Recovered/Resolved]
  - Hallucination [Recovered/Resolved]
  - General physical health deterioration [Not Recovered/Not Resolved]
  - Device kink [Not Recovered/Not Resolved]
  - Musculoskeletal stiffness [Not Recovered/Not Resolved]
  - Malaise [Recovered/Resolved]
  - Hallucination, auditory [Not Recovered/Not Resolved]
  - Incorrect dose administered [Not Recovered/Not Resolved]
  - Illusion [Not Recovered/Not Resolved]
  - Muscle rigidity [Recovered/Resolved]
  - Feeling abnormal [Not Recovered/Not Resolved]
  - Nausea [Recovered/Resolved]
  - Device issue [Unknown]
  - Neuralgia [Not Recovered/Not Resolved]
  - Hunger [Not Recovered/Not Resolved]
  - Memory impairment [Not Recovered/Not Resolved]
  - Visual impairment [Recovered/Resolved]
  - Fatigue [Not Recovered/Not Resolved]
  - Weight increased [Not Recovered/Not Resolved]
  - Abdominal pain [Recovering/Resolving]
  - Drug abuse [Not Recovered/Not Resolved]

NARRATIVE: CASE EVENT DATE: 2017
